FAERS Safety Report 10154918 (Version 1)
Quarter: 2014Q2

REPORT INFORMATION
  Report Type: Spontaneous
  Country: GB (occurrence: GB)
  Receive Date: 20140506
  Receipt Date: 20140506
  Transmission Date: 20141212
  Serious: Yes (Other)
  Sender: FDA-Public Use
  Company Number: GB-BAYER-2014-064409

PATIENT
  Sex: Male
  Weight: 1.9 kg

DRUGS (4)
  1. NIFEDIPINE [Suspect]
     Route: 064
  2. NIFEDIPINE [Suspect]
     Route: 064
  3. SULINDAC [Concomitant]
     Dosage: UNK
     Route: 064
  4. SULINDAC [Concomitant]
     Dosage: UNK
     Route: 064

REACTIONS (8)
  - Maternal exposure during pregnancy [None]
  - Premature baby [None]
  - Low birth weight baby [None]
  - Bartter^s syndrome [None]
  - Hyponatraemia [None]
  - Polyuria [None]
  - Hydronephrosis [None]
  - Nephrocalcinosis [None]
